FAERS Safety Report 15096157 (Version 1)
Quarter: 2018Q3

REPORT INFORMATION
  Report Type: Spontaneous
  Country: US (occurrence: US)
  Receive Date: 20180702
  Receipt Date: 20180702
  Transmission Date: 20181010
  Serious: Yes (Death)
  Sender: FDA-Public Use
  Company Number: US-ASTELLAS-2018US024933

PATIENT
  Age: 71 Year
  Sex: Male

DRUGS (1)
  1. XTANDI [Suspect]
     Active Substance: ENZALUTAMIDE
     Indication: PROSTATE CANCER
     Dosage: 160 MG (40 MG 4 CAPS), ONCE DAILY
     Route: 065

REACTIONS (3)
  - Death [Fatal]
  - Vomiting [Unknown]
  - Bladder obstruction [Unknown]

NARRATIVE: CASE EVENT DATE: 20180529
